FAERS Safety Report 9781426 (Version 1)
Quarter: 2013Q4

REPORT INFORMATION
  Report Type: Spontaneous
  Country: US (occurrence: None)
  Receive Date: 20131223
  Receipt Date: 20131223
  Transmission Date: 20140711
  Serious: Yes (Hospitalization)
  Sender: FDA-Public Use
  Company Number: None

PATIENT
  Age: 66 Year
  Sex: Male
  Weight: 119.1 kg

DRUGS (1)
  1. MOMETASONE [Suspect]
     Dates: start: 20131016

REACTIONS (2)
  - Nocturnal dyspnoea [None]
  - Malaise [None]
